FAERS Safety Report 18303714 (Version 1)
Quarter: 2020Q3

REPORT INFORMATION
  Report Type: Spontaneous
  Country: US (occurrence: US)
  Receive Date: 20200923
  Receipt Date: 20200923
  Transmission Date: 20201103
  Serious: No
  Sender: FDA-Public Use
  Company Number: US-TEVA-2020-US-1831174

PATIENT
  Age: 15 Year
  Sex: Female

DRUGS (1)
  1. CLARAVIS [Suspect]
     Active Substance: ISOTRETINOIN
     Route: 065

REACTIONS (7)
  - Presyncope [Recovered/Resolved]
  - Weight decreased [Unknown]
  - Menorrhagia [Recovered/Resolved]
  - Vaginal haemorrhage [Recovered/Resolved]
  - Decreased appetite [Unknown]
  - Menstrual disorder [Unknown]
  - Dizziness [Recovered/Resolved]
